FAERS Safety Report 19946457 (Version 1)
Quarter: 2021Q4

REPORT INFORMATION
  Report Type: Spontaneous
  Country: DE (occurrence: DE)
  Receive Date: 20211012
  Receipt Date: 20211012
  Transmission Date: 20220303
  Serious: Yes (Hospitalization)
  Sender: FDA-Public Use
  Company Number: DE-ADRED-06267-01

PATIENT
  Age: 73 Year
  Sex: Female

DRUGS (13)
  1. GABAPENTIN [Suspect]
     Active Substance: GABAPENTIN
     Indication: Product used for unknown indication
     Dosage: 600 MG, 1-0-1-0
  2. BROMAZEPAM [Suspect]
     Active Substance: BROMAZEPAM
     Indication: Product used for unknown indication
     Dosage: 6 MG, BEDARF NUR BEI SCHLAFLOSIGKEIT
  3. PRAMIPEXOLE [Suspect]
     Active Substance: PRAMIPEXOLE
     Indication: Product used for unknown indication
     Dosage: 35 MG, 0-0-0-1
  4. DOXEPIN NEURAXPHARM [Concomitant]
     Dosage: 25 MG, 0-0-0.5-0
  5. TORSEMIDE [Concomitant]
     Active Substance: TORSEMIDE
     Dosage: 10 MG, 2-0-0-0
  6. RAMIPRIL [Concomitant]
     Active Substance: RAMIPRIL
     Dosage: 10 MG, 0.5-0-0.5-0
  7. TIOTROPIUM BROMIDE [Concomitant]
     Active Substance: TIOTROPIUM BROMIDE
     Dosage: 10 ?G, 1-0-0-0
     Route: 055
  8. PANTOPRAZOLE [Concomitant]
     Active Substance: PANTOPRAZOLE
     Dosage: 40 MG, 1-0-0-0
  9. BECLOMETHASONE DIPROPIONATE\FORMOTEROL FUMARATE [Concomitant]
     Active Substance: BECLOMETHASONE DIPROPIONATE\FORMOTEROL FUMARATE
     Dosage: 2-0-2-0
     Route: 055
  10. DIHYDRALAZINE SULFATE [Concomitant]
     Active Substance: DIHYDRALAZINE SULFATE
     Dosage: 25 MG, 1-0-0-0
  11. METFORMIN [Concomitant]
     Active Substance: METFORMIN HYDROCHLORIDE
     Dosage: 500 MG, 1-0-1-0
  12. VERAPAMIL AL [Concomitant]
     Dosage: 240 MG, 0.5-0-0.5-0
  13. IBUPROFEN [Concomitant]
     Active Substance: IBUPROFEN
     Dosage: 600 MG, 1-0-0-0

REACTIONS (3)
  - Fracture [Unknown]
  - Fall [Unknown]
  - Product prescribing error [Unknown]
